FAERS Safety Report 4626132-0 (Version None)
Quarter: 2005Q2

REPORT INFORMATION
  Report Type: 
  Country: None (occurrence: None)
  Receive Date: 20050404
  Receipt Date: 20050225
  Transmission Date: 20051028
  Serious: Yes (Death)
  Sender: FDA-Public Use
  Company Number: PHBS2005JP02931

PATIENT
  Age: 68 Year
  Sex: Male
  Weight: 66 kg

DRUGS (32)
  1. GLEEVEC [Suspect]
     Indication: ACUTE LYMPHOCYTIC LEUKAEMIA
     Dosage: 400 MG/DAY
     Route: 048
     Dates: start: 20050215, end: 20050220
  2. PREDNISOLONE [Suspect]
     Dosage: 30 MG/D
     Route: 048
     Dates: start: 20050204, end: 20050215
  3. KYTRIL [Suspect]
     Dosage: 1 DF/D
     Dates: start: 20050204, end: 20050215
  4. ONCOVIN [Suspect]
     Dosage: 2 MG/D
     Dates: start: 20050215, end: 20050215
  5. DAUNOMYCIN [Suspect]
     Dosage: 35 MG/D
     Dates: start: 20050204, end: 20050205
  6. DAUNOMYCIN [Suspect]
     Dosage: 35 MG/D
     Dates: start: 20050208, end: 20050209
  7. SUNRABIN [Suspect]
     Dosage: 250 MG/D
     Dates: start: 20050204, end: 20050214
  8. LEUKERIN [Suspect]
     Dosage: 100 MG/D
     Route: 048
     Dates: start: 20050204, end: 20050215
  9. MICARDIS [Suspect]
     Dosage: 40 MG/D
     Route: 048
     Dates: start: 20050214, end: 20050220
  10. SEPAMIT - SLOW RELEASE [Suspect]
     Dosage: 10 MG/D
     Route: 048
     Dates: start: 20050204, end: 20050211
  11. ITOROL [Suspect]
     Dosage: 40 MG/D
     Route: 048
     Dates: end: 20050220
  12. NOVORAPID [Suspect]
     Indication: DIABETES MELLITUS
     Route: 058
     Dates: end: 20050220
  13. NOVORAPID [Suspect]
     Route: 058
  14. BAKTAR [Suspect]
     Indication: INFECTION PROPHYLAXIS
     Dosage: 4 DF/D
     Route: 048
     Dates: start: 20050216, end: 20050216
  15. BAKTAR [Suspect]
     Dosage: 4 DF/D
     Route: 048
     Dates: start: 20050219, end: 20050219
  16. MAGNESIUM OXIDE [Suspect]
     Indication: CONSTIPATION
     Dosage: 2 G/D
     Route: 048
     Dates: start: 20050215, end: 20050220
  17. GRAN [Suspect]
     Indication: CONSTIPATION
     Dosage: 150 UG/D
     Route: 058
     Dates: start: 20050216, end: 20050220
  18. DECADRON [Suspect]
     Dosage: 40 MG/D
     Dates: start: 20050216, end: 20050219
  19. MARZULENE S [Suspect]
     Dosage: 2 G/D
     Route: 048
     Dates: start: 20050202, end: 20050220
  20. ACECOL [Suspect]
     Dosage: 2 MG/D
     Route: 048
     Dates: start: 20050131, end: 20050204
  21. ACECOL [Suspect]
     Dosage: 4 MG/D
     Route: 048
     Dates: start: 20050205, end: 20050220
  22. SALOBEL [Suspect]
     Dosage: 100 MG/D
     Route: 048
     Dates: start: 20050205, end: 20050220
  23. ITRIZOLE [Suspect]
     Indication: FUNGAL INFECTION
     Dosage: 200 MG/D
     Route: 048
     Dates: start: 20050204, end: 20050220
  24. PYRINAZIN [Suspect]
     Indication: PAIN
     Dosage: 1.2 G/D
     Route: 048
     Dates: start: 20050130, end: 20050207
  25. MYSLEE [Suspect]
     Indication: INSOMNIA
     Dates: start: 20050130, end: 20050220
  26. OMEPRAL [Suspect]
     Indication: UPPER GASTROINTESTINAL HAEMORRHAGE
     Dosage: 40 MG/D
     Dates: start: 20050219
  27. ADONA (AC-17) [Suspect]
     Indication: UPPER GASTROINTESTINAL HAEMORRHAGE
     Dosage: 100 MG/D
     Dates: start: 20050219
  28. HANP [Suspect]
     Indication: POLYURIA
     Dosage: UNK, UNK
     Route: 042
     Dates: start: 20050218
  29. CATABON [Suspect]
     Indication: POLYURIA
     Dosage: 72 ML/D
     Route: 042
     Dates: start: 20050218
  30. ALBUMIN (HUMAN) [Suspect]
     Indication: NEPHROTIC SYNDROME
     Dosage: 2.5-5 G/D
     Route: 042
     Dates: start: 20050219
  31. LASIX [Suspect]
     Indication: NEPHROTIC SYNDROME
     Dosage: 20-80 MG/D
     Route: 042
     Dates: start: 20050207, end: 20050220
  32. HYPER-CVAD [Suspect]
     Dates: start: 20050215

REACTIONS (24)
  - ACUTE LEUKAEMIA [None]
  - ASPIRATION [None]
  - BLOOD PRESSURE SYSTOLIC INCREASED [None]
  - BRADYCARDIA [None]
  - CARDIO-RESPIRATORY ARREST [None]
  - CARDIOVASCULAR DISORDER [None]
  - ELECTROCARDIOGRAM QRS COMPLEX PROLONGED [None]
  - FALL [None]
  - FATIGUE [None]
  - GASTROINTESTINAL HAEMORRHAGE [None]
  - HAEMATEMESIS [None]
  - HEAD INJURY [None]
  - NAUSEA [None]
  - OEDEMA PERIPHERAL [None]
  - PLATELET COUNT DECREASED [None]
  - PULMONARY HAEMORRHAGE [None]
  - PULSE ABSENT [None]
  - RESPIRATORY RATE DECREASED [None]
  - THERAPY NON-RESPONDER [None]
  - UNRESPONSIVE TO VERBAL STIMULI [None]
  - URINARY INCONTINENCE [None]
  - URINE OUTPUT DECREASED [None]
  - WEIGHT DECREASED [None]
  - WEIGHT INCREASED [None]
